FAERS Safety Report 21221945 (Version 1)
Quarter: 2022Q3

REPORT INFORMATION
  Report Type: Spontaneous
  Country: TL (occurrence: TL)
  Receive Date: 20220817
  Receipt Date: 20220817
  Transmission Date: 20221026
  Serious: Yes (Death, Other)
  Sender: FDA-Public Use
  Company Number: TL-NOVARTISPH-NVSC2022TL185770

PATIENT
  Sex: Male

DRUGS (1)
  1. GLIVEC [Suspect]
     Active Substance: IMATINIB MESYLATE
     Indication: Chronic myeloid leukaemia
     Dosage: 400MG (4 X 100MG TABLETS)
     Route: 065

REACTIONS (3)
  - Sepsis [Fatal]
  - Pyrexia [Fatal]
  - Diarrhoea [Unknown]
